FAERS Safety Report 16640561 (Version 1)
Quarter: 2019Q3

REPORT INFORMATION
  Report Type: Spontaneous
  Country: FR (occurrence: FR)
  Receive Date: 20190729
  Receipt Date: 20190729
  Transmission Date: 20191004
  Serious: Yes (Other)
  Sender: FDA-Public Use
  Company Number: FR-ACCORD-149333

PATIENT
  Age: 67 Year
  Sex: Male
  Weight: 79.5 kg

DRUGS (3)
  1. SIMVASTATIN. [Suspect]
     Active Substance: SIMVASTATIN
     Indication: DYSLIPIDAEMIA
     Route: 002
     Dates: start: 2015, end: 20180920
  2. ATORVASTATIN/ATORVASTATIN CALCIUM [Suspect]
     Active Substance: ATORVASTATIN CALCIUM
     Indication: DYSLIPIDAEMIA
     Route: 002
     Dates: start: 20190114, end: 20190331
  3. ROSUVASTATIN. [Suspect]
     Active Substance: ROSUVASTATIN
     Indication: DYSLIPIDAEMIA
     Route: 048
     Dates: start: 201901

REACTIONS (1)
  - Tendon rupture [Not Recovered/Not Resolved]

NARRATIVE: CASE EVENT DATE: 201903
